FAERS Safety Report 7961712-6 (Version None)
Quarter: 2011Q4

REPORT INFORMATION
  Report Type: 
  Country: None (occurrence: None)
  Receive Date: 20111207
  Receipt Date: 20111130
  Transmission Date: 20120403
  Serious: Yes (Hospitalization)
  Sender: FDA-Public Use
  Company Number: SE-AMGEN-SWECT2011063636

PATIENT
  Age: 81 Year
  Sex: Female

DRUGS (2)
  1. CINACALCET HYDROCHLORIDE [Suspect]
     Indication: HYPERPARATHYROIDISM SECONDARY
     Dates: start: 20070109
  2. BLINDED PLACEBO [Suspect]
     Indication: HYPERPARATHYROIDISM SECONDARY
     Dates: start: 20070109

REACTIONS (1)
  - OEDEMA PERIPHERAL [None]
